FAERS Safety Report 4360948-3 (Version None)
Quarter: 2004Q2

REPORT INFORMATION
  Report Type: 
  Country: None (occurrence: None)
  Receive Date: 20040517
  Receipt Date: 20040503
  Transmission Date: 20050107
  Serious: Yes (Hospitalization)
  Sender: FDA-Public Use
  Company Number: 2003017159

PATIENT
  Age: 65 Year
  Sex: Female
  Weight: 87 kg

DRUGS (15)
  1. SILDENAFIL (SILDENAFIL) [Suspect]
     Indication: PULMONARY HYPERTENSION
     Dosage: 60 MG (20 MG, 3 IN 1 D), ORAL
     Route: 048
     Dates: start: 20030331
  2. METFORMIN HCL [Concomitant]
  3. FUROSEMIDE [Concomitant]
  4. TAMOXIFEN CITRATE [Concomitant]
  5. LISINOPRIL [Concomitant]
  6. BUMETANIDE [Concomitant]
  7. METHYLPREDNISOLONE [Concomitant]
  8. WARFARIN SODIUM [Concomitant]
  9. SPIRONOLACTONE [Concomitant]
  10. DUOVENT [Concomitant]
  11. BUDESONIDE (BUDESONIDE) [Concomitant]
  12. INSULIN [Concomitant]
  13. INSULIN HUMAN INJECTION, ISOPHANE (INSULIN HUMAN INJECTION, ISOPHANE) [Concomitant]
  14. FLURAZEPAM [Concomitant]
  15. VERAPAMIL HCL [Concomitant]

REACTIONS (9)
  - BRONCHIAL INFECTION [None]
  - DIASTOLIC DYSFUNCTION [None]
  - GASTRITIS [None]
  - GASTRITIS HAEMORRHAGIC [None]
  - IRON DEFICIENCY ANAEMIA [None]
  - OESOPHAGITIS [None]
  - PEPTIC ULCER [None]
  - PYREXIA [None]
  - VENTRICULAR DYSFUNCTION [None]
